FAERS Safety Report 17689493 (Version 1)
Quarter: 2020Q2

REPORT INFORMATION
  Report Type: Spontaneous
  Country: US (occurrence: US)
  Receive Date: 20200421
  Receipt Date: 20200421
  Transmission Date: 20200714
  Serious: Yes (Hospitalization)
  Sender: FDA-Public Use
  Company Number: None

PATIENT
  Age: 82 Year
  Sex: Male

DRUGS (8)
  1. ONDANSETRON TAB 4 MG [Concomitant]
  2. MIRTAZAPINE TAB 15 MG ODT [Concomitant]
  3. MEGESTROL SUS 625 MG [Concomitant]
  4. PREDNISONE TAB 10 MG [Concomitant]
  5. HUMIRA [Suspect]
     Active Substance: ADALIMUMAB
     Indication: PRODUCT USED FOR UNKNOWN INDICATION
     Dosage: ?          OTHER FREQUENCY:WEEKLY;?
     Route: 058
     Dates: start: 20191212
  6. PANTOPRAZOLE TAB 40 MG [Concomitant]
  7. DICYCLOMINE CAP 10 MG [Concomitant]
  8. NYSTATIN SUS 1000000 [Concomitant]

REACTIONS (2)
  - Therapy interrupted [None]
  - Abdominal abscess [None]
